FAERS Safety Report 4543273-7 (Version None)
Quarter: 2004Q4

REPORT INFORMATION
  Report Type: 
  Country: None (occurrence: None)
  Receive Date: 20041229
  Receipt Date: 20041222
  Transmission Date: 20050328
  Serious: Yes (Hospitalization)
  Sender: FDA-Public Use
  Company Number: A044-002-005383

PATIENT
  Age: 87 Year
  Sex: Male

DRUGS (3)
  1. ARICEPT [Suspect]
     Dosage: ORAL
     Route: 048
  2. OXCARBAZEPINE (OXCARBAZEPINE) [Suspect]
     Dosage: 60 MG, ORAL
     Route: 048
     Dates: end: 20041004
  3. FINASTERIDE [Concomitant]

REACTIONS (1)
  - PEMPHIGOID [None]
